FAERS Safety Report 16743683 (Version 2)
Quarter: 2021Q1

REPORT INFORMATION
  Report Type: Report from Study
  Country: US (occurrence: US)
  Receive Date: 20190827
  Receipt Date: 20210309
  Transmission Date: 20210419
  Serious: Yes (Other)
  Sender: FDA-Public Use
  Company Number: US-AMGEN-USASP2019134449

PATIENT
  Age: 70 Year
  Sex: Female

DRUGS (2)
  1. ENBREL [Suspect]
     Active Substance: ETANERCEPT
     Dosage: 50 MILLIGRAM, QWK
     Route: 065
     Dates: start: 2017
  2. ENBREL [Suspect]
     Active Substance: ETANERCEPT
     Indication: RHEUMATOID ARTHRITIS
     Dosage: 50 MILLIGRAM, QWK
     Route: 065
     Dates: end: 201708

REACTIONS (6)
  - Knee arthroplasty [Unknown]
  - Arthropod bite [Unknown]
  - Cystitis [Unknown]
  - Bone density decreased [Unknown]
  - Psoriasis [Unknown]
  - Dental operation [Unknown]

NARRATIVE: CASE EVENT DATE: 201708
